FAERS Safety Report 17598028 (Version 2)
Quarter: 2020Q4

REPORT INFORMATION
  Report Type: Spontaneous
  Country: US (occurrence: US)
  Receive Date: 20200330
  Receipt Date: 20201006
  Transmission Date: 20210113
  Serious: No
  Sender: FDA-Public Use
  Company Number: US-PFIZER INC-2020126446

PATIENT
  Age: 40 Year
  Sex: Female

DRUGS (1)
  1. IBRANCE [Suspect]
     Active Substance: PALBOCICLIB
     Indication: BREAST CANCER FEMALE
     Dosage: 125 MG, CYCLIC (DAYS 1-21 OF EACH 28 DAY CYCLE)
     Route: 048
     Dates: start: 20200318

REACTIONS (7)
  - Constipation [Unknown]
  - Fatigue [Recovering/Resolving]
  - Dyspnoea [Unknown]
  - Insomnia [Unknown]
  - White blood cell count decreased [Unknown]
  - Nasal congestion [Unknown]
  - Abdominal pain lower [Recovering/Resolving]
